FAERS Safety Report 8530612-5 (Version None)
Quarter: 2012Q2

REPORT INFORMATION
  Report Type: 
  Country: None (occurrence: None)
  Receive Date: 20120628
  Receipt Date: 20120604
  Transmission Date: 20120825
  Serious: Yes (Hospitalization)
  Sender: FDA-Public Use
  Company Number: 2012MZ000344

PATIENT
  Age: 56 Year
  Sex: Female

DRUGS (3)
  1. INSULIN [Concomitant]
  2. BOTULINUM TOXIN TYPE A [Suspect]
     Indication: SKIN COSMETIC PROCEDURE
     Dosage: 50 IU; X1; SC
     Route: 058
     Dates: start: 20120525, end: 20120525
  3. RADIESSE [Concomitant]

REACTIONS (8)
  - PRURITUS [None]
  - DIABETES MELLITUS INADEQUATE CONTROL [None]
  - GASTRITIS [None]
  - DUODENITIS [None]
  - DYSPNOEA [None]
  - LEUKOCYTOCLASTIC VASCULITIS [None]
  - INJECTION SITE HAEMATOMA [None]
  - ABDOMINAL PAIN UPPER [None]
